FAERS Safety Report 7428430-4 (Version None)
Quarter: 2011Q2

REPORT INFORMATION
  Report Type: 
  Country: None (occurrence: None)
  Receive Date: 20110421
  Receipt Date: 20110412
  Transmission Date: 20111010
  Serious: Yes (Other)
  Sender: FDA-Public Use
  Company Number: PHHY2010CA74458

PATIENT
  Sex: Female

DRUGS (3)
  1. ACLASTA [Suspect]
     Indication: OSTEOPOROSIS
     Dosage: 5 MG
     Dates: start: 20101026
  2. MORPHINE [Concomitant]
  3. ACLASTA [Suspect]
     Dosage: UNK

REACTIONS (8)
  - JOINT SWELLING [None]
  - MOVEMENT DISORDER [None]
  - MYALGIA [None]
  - COUGH [None]
  - OEDEMA PERIPHERAL [None]
  - PAIN IN EXTREMITY [None]
  - PALPITATIONS [None]
  - DRY MOUTH [None]
